FAERS Safety Report 6555156-1 (Version None)
Quarter: 2010Q1

REPORT INFORMATION
  Report Type: 
  Country: None (occurrence: None)
  Receive Date: 20100126
  Receipt Date: 20100126
  Transmission Date: 20100710
  Serious: Yes (Other)
  Sender: FDA-Public Use
  Company Number: None

PATIENT
  Age: 30 Year
  Sex: Female
  Weight: 62.5964 kg

DRUGS (1)
  1. PARLODEL [Suspect]
     Indication: HYPOTHALAMO-PITUITARY DISORDER
     Dosage: 2.5 MG FOLLOWED DR. ORDERS 1 TABLET TWICE DAILY

REACTIONS (3)
  - BODY HEIGHT INCREASED [None]
  - DYSSTASIA [None]
  - IMMOBILE [None]
